FAERS Safety Report 7034907-6 (Version None)
Quarter: 2010Q4

REPORT INFORMATION
  Report Type: 
  Country: None (occurrence: None)
  Receive Date: 20101008
  Receipt Date: 20100929
  Transmission Date: 20110411
  Serious: Yes (Death, Hospitalization, Other)
  Sender: FDA-Public Use
  Company Number: ES-CELGENEUS-144-50794-10092871

PATIENT
  Age: 71 Year
  Sex: Male

DRUGS (4)
  1. VIDAZA [Suspect]
     Route: 051
     Dates: start: 20090511, end: 20100421
  2. VIDAZA [Suspect]
     Dosage: 50% ADJUSTMENT
     Route: 051
  3. ONDANSETRON [Concomitant]
     Route: 065
  4. NEUPOGEN [Concomitant]
     Indication: PRODUCT USED FOR UNKNOWN INDICATION
     Route: 051

REACTIONS (4)
  - ACUTE MYELOID LEUKAEMIA [None]
  - CHOLECYSTITIS INFECTIVE [None]
  - MYELODYSPLASTIC SYNDROME TRANSFORMATION [None]
  - PNEUMONIA FUNGAL [None]
